FAERS Safety Report 4663133-0 (Version None)
Quarter: 2005Q2

REPORT INFORMATION
  Report Type: 
  Country: None (occurrence: None)
  Receive Date: 20050510
  Receipt Date: 20050120
  Transmission Date: 20051028
  Serious: Yes (Other)
  Sender: FDA-Public Use
  Company Number: PHEH2005US01107

PATIENT
  Age: 31 Year
  Sex: Female

DRUGS (1)
  1. TEGRETOL [Suspect]
     Indication: CONVULSION
     Dosage: 200 MG, ORAL
     Route: 048

REACTIONS (4)
  - ACCIDENTAL OVERDOSE [None]
  - CONFUSIONAL STATE [None]
  - MUSCLE DISORDER [None]
  - TREMOR [None]
